FAERS Safety Report 5211902-0 (Version None)
Quarter: 2007Q1

REPORT INFORMATION
  Report Type: 
  Country: None (occurrence: None)
  Receive Date: 20070116
  Receipt Date: 20070116
  Transmission Date: 20070707
  Serious: Yes (Other)
  Sender: FDA-Public Use
  Company Number: None

PATIENT
  Age: 8 Day
  Sex: Female

DRUGS (1)
  1. IBUPROFEN [Suspect]
     Dates: start: 20061019, end: 20061021

REACTIONS (1)
  - INTESTINAL PERFORATION [None]
